FAERS Safety Report 9226623 (Version 2)
Quarter: 2013Q2

REPORT INFORMATION
  Report Type: Spontaneous
  Country: US (occurrence: US)
  Receive Date: 20130412
  Receipt Date: 20130523
  Transmission Date: 20140414
  Serious: No
  Sender: FDA-Public Use
  Company Number: US-009507513-1304USA005031

PATIENT
  Sex: 0

DRUGS (1)
  1. NEXPLANON [Suspect]
     Indication: CONTRACEPTION
     Dosage: UNK
     Route: 059
     Dates: start: 20130402

REACTIONS (3)
  - Implant site pruritus [Unknown]
  - Implant site erythema [Unknown]
  - Injection site mass [Unknown]
